FAERS Safety Report 5798145-7 (Version None)
Quarter: 2008Q3

REPORT INFORMATION
  Report Type: 
  Country: None (occurrence: None)
  Receive Date: 20080702
  Receipt Date: 20080630
  Transmission Date: 20090109
  Serious: Yes (Hospitalization)
  Sender: FDA-Public Use
  Company Number: A0735279A

PATIENT
  Age: 47 Year
  Sex: Female

DRUGS (11)
  1. ALLI [Suspect]
     Dates: start: 20080601, end: 20080625
  2. SEROQUEL [Concomitant]
  3. LISINOPRIL [Concomitant]
  4. TRAZODONE HCL [Concomitant]
  5. XANAX [Concomitant]
  6. GEMFIBROZIL [Concomitant]
  7. PSYCHOTROPIC DRUGS [Concomitant]
  8. LEVEMIR [Concomitant]
     Route: 058
  9. NOVOLOG [Concomitant]
     Route: 058
  10. METFORMIN HCL [Concomitant]
  11. GLIPIZIDE [Concomitant]

REACTIONS (7)
  - ANOREXIA [None]
  - ASTHENIA [None]
  - BLOOD GLUCOSE DECREASED [None]
  - COLD SWEAT [None]
  - DYSARTHRIA [None]
  - FEELING ABNORMAL [None]
  - MOBILITY DECREASED [None]
